FAERS Safety Report 8851163 (Version 1)
Quarter: 2012Q4

REPORT INFORMATION
  Report Type: 
  Country: US (occurrence: US)
  Receive Date: 20121019
  Receipt Date: 20121019
  Transmission Date: 20130627
  Serious: No
  Sender: FDA-Public Use
  Company Number: US-009507513-1210USA006247

PATIENT

DRUGS (1)
  1. DULERA [Suspect]
     Indication: ASTHMA PROPHYLAXIS
     Dosage: 200 mg, UNK
     Route: 055

REACTIONS (1)
  - Parkinson^s disease [Unknown]
